FAERS Safety Report 11864925 (Version 1)
Quarter: 2015Q4

REPORT INFORMATION
  Report Type: Spontaneous
  Country: ES (occurrence: ES)
  Receive Date: 20151223
  Receipt Date: 20151223
  Transmission Date: 20160305
  Serious: Yes (Other)
  Sender: FDA-Public Use
  Company Number: ES-ASTRAZENECA-2015SF28878

PATIENT
  Age: 26 Year
  Sex: Female

DRUGS (4)
  1. VALPROIC ACID. [Interacting]
     Active Substance: VALPROIC ACID
     Indication: ANTICONVULSANT DRUG LEVEL
     Route: 042
  2. MEROPENEM. [Suspect]
     Active Substance: MEROPENEM
     Indication: SEPTIC SHOCK
     Route: 042
  3. FLUCONAZOLE. [Concomitant]
     Active Substance: FLUCONAZOLE
     Indication: SEPTIC SHOCK
     Route: 042
  4. VALPROIC ACID. [Interacting]
     Active Substance: VALPROIC ACID
     Indication: ANTICONVULSANT DRUG LEVEL
     Route: 042

REACTIONS (4)
  - Drug interaction [Unknown]
  - Off label use [Unknown]
  - Generalised tonic-clonic seizure [Recovered/Resolved]
  - Drug effect decreased [Recovered/Resolved]
